FAERS Safety Report 12110605 (Version 1)
Quarter: 2016Q1

REPORT INFORMATION
  Report Type: Spontaneous
  Country: PT (occurrence: PT)
  Receive Date: 20160224
  Receipt Date: 20160224
  Transmission Date: 20160526
  Serious: Yes (Life-Threatening)
  Sender: FDA-Public Use
  Company Number: PT-FRESENIUS KABI-FK201600864

PATIENT
  Age: 67 Year
  Sex: Male

DRUGS (5)
  1. OXALIPLATIN 5MG/ML CONCENTRATE FOR SOLUTION FOR INFUSION [Suspect]
     Active Substance: OXALIPLATIN
     Indication: PRODUCT USED FOR UNKNOWN INDICATION
     Route: 042
     Dates: start: 201504, end: 20151027
  2. DISODIUM LEVOFOLINATE [Concomitant]
     Route: 042
     Dates: start: 20151027, end: 20151027
  3. DISODIUM MAGNESIUM [Concomitant]
     Route: 042
     Dates: start: 20151027, end: 20151027
  4. ONDANSETRON [Concomitant]
     Active Substance: ONDANSETRON
     Route: 042
     Dates: start: 20151027, end: 20151027
  5. DEXAMETHASONE. [Concomitant]
     Active Substance: DEXAMETHASONE
     Route: 042
     Dates: start: 20151027, end: 20151027

REACTIONS (6)
  - Pain in extremity [Recovered/Resolved]
  - Cyanosis [Recovered/Resolved]
  - Feeling hot [Recovered/Resolved]
  - Tremor [Recovered/Resolved]
  - Dyspnoea [Recovered/Resolved]
  - Pyrexia [Recovered/Resolved]

NARRATIVE: CASE EVENT DATE: 20151027
